FAERS Safety Report 6063552-4 (Version None)
Quarter: 2009Q1

REPORT INFORMATION
  Report Type: 
  Country: None (occurrence: None)
  Receive Date: 20090129
  Receipt Date: 20090116
  Transmission Date: 20090719
  Serious: Yes (Life-Threatening, Hospitalization)
  Sender: FDA-Public Use
  Company Number: 2009000188

PATIENT
  Age: 58 Year
  Sex: Male
  Weight: 84.4 kg

DRUGS (5)
  1. ERLOTINIB (ERLOTINIB) (TABLET) (ERLOTINIB) [Suspect]
     Indication: OESOPHAGEAL CARCINOMA
     Dosage: 100 DAYS 1-42, ORAL
     Route: 048
     Dates: start: 20080915
  2. BEVACIZUMAB (INJECTION FOR INFUSION) [Suspect]
     Dosage: 15 MG/KG, DAYS 1 AND 22) INTRAVENOUS
     Route: 042
     Dates: start: 20080915
  3. PACLITAXEL [Suspect]
     Dosage: 200 MG/M2, DAYS 1 AND 22) INTRAVENOUS
     Route: 042
     Dates: start: 20080915
  4. CARBOPLATIN [Suspect]
     Dosage: 5 DAYS 1 AND 22, INTRAVENOUS
     Route: 042
     Dates: start: 20080915
  5. FLUOROURACIL [Suspect]
     Dosage: 225 MG/M2, DAYS 1-35), INTRAVENOUS
     Route: 042
     Dates: start: 20080915

REACTIONS (6)
  - DIARRHOEA [None]
  - DYSPHAGIA [None]
  - FEBRILE NEUTROPENIA [None]
  - PENIS DISORDER [None]
  - VOMITING [None]
  - WHITE BLOOD CELL COUNT DECREASED [None]
